FAERS Safety Report 9942227 (Version 2)
Quarter: 2014Q1

REPORT INFORMATION
  Report Type: Report from Study
  Country: US (occurrence: US)
  Receive Date: 20140303
  Receipt Date: 20140303
  Transmission Date: 20141002
  Serious: No
  Sender: FDA-Public Use
  Company Number: US-ABBVIE-12P-163-0919107-00

PATIENT
  Age: 75 Year
  Sex: Female

DRUGS (12)
  1. HUMIRA [Suspect]
     Indication: PSORIASIS
     Route: 058
     Dates: start: 20120322
  2. HUMIRA [Suspect]
     Indication: PSORIATIC ARTHROPATHY
     Route: 058
     Dates: start: 20130121
  3. AMLODIPINE [Concomitant]
     Route: 048
  4. LOVASTATIN [Concomitant]
     Route: 048
  5. GABAPENTIN [Concomitant]
     Route: 048
  6. CLOBETASOL 0.05% CREAM [Concomitant]
     Dosage: DAILY
     Route: 061
  7. VITAMIN B-12 [Concomitant]
     Dosage: DAILY
     Route: 048
  8. SENNA-S [Concomitant]
     Dosage: AT BEDTIME
     Route: 048
  9. LEVOTHYROXINE [Concomitant]
     Dosage: DAILY
     Route: 048
  10. ESTER-C [Concomitant]
     Dosage: DAILY
     Route: 048
  11. VITAMIN D3 [Concomitant]
     Dosage: DAILY
     Route: 048
  12. ASPIRIN (E.C.) [Concomitant]
     Dosage: DAILY
     Route: 048

REACTIONS (7)
  - Dizziness [Not Recovered/Not Resolved]
  - Fatigue [Not Recovered/Not Resolved]
  - Insomnia [Unknown]
  - Flushing [Unknown]
  - Spirometry abnormal [Unknown]
  - Influenza like illness [Recovering/Resolving]
  - Malaise [Recovering/Resolving]
